FAERS Safety Report 16440190 (Version 2)
Quarter: 2019Q3

REPORT INFORMATION
  Report Type: Spontaneous
  Country: JP (occurrence: JP)
  Receive Date: 20190617
  Receipt Date: 20190709
  Transmission Date: 20191004
  Serious: Yes (Other)
  Sender: FDA-Public Use
  Company Number: JP-PFIZER INC-2019248013

PATIENT
  Age: 37 Year
  Sex: Male

DRUGS (5)
  1. CALONAL [Concomitant]
     Active Substance: ACETAMINOPHEN
     Indication: LUNG NEOPLASM MALIGNANT
     Dosage: 600 MG, 4X/DAY
     Route: 048
     Dates: start: 20190520
  2. FUROSEMIDE. [Concomitant]
     Active Substance: FUROSEMIDE
     Indication: LUNG NEOPLASM MALIGNANT
     Dosage: 20 MG, 1X/DAY
     Route: 048
     Dates: start: 20190306
  3. LORBRENA [Suspect]
     Active Substance: LORLATINIB
     Dosage: 100 MG, 1X/DAY
     Route: 048
  4. ROSUVASTATIN [ROSUVASTATIN CALCIUM] [Concomitant]
     Indication: PROPHYLAXIS
     Dosage: 5 MG, 1X/DAY
     Route: 048
     Dates: start: 20190123
  5. ROSUVASTATIN [ROSUVASTATIN CALCIUM] [Concomitant]
     Indication: LUNG NEOPLASM MALIGNANT

REACTIONS (2)
  - Herpes zoster [Not Recovered/Not Resolved]
  - Seizure [Recovered/Resolved]

NARRATIVE: CASE EVENT DATE: 20190520
